FAERS Safety Report 5026757-7 (Version None)
Quarter: 2006Q2

REPORT INFORMATION
  Report Type: 
  Country: None (occurrence: None)
  Receive Date: 20060609
  Receipt Date: 20060531
  Transmission Date: 20061013
  Serious: No
  Sender: FDA-Public Use
  Company Number: B0426638A

PATIENT
  Sex: Male

DRUGS (5)
  1. RETROVIR [Suspect]
     Indication: ANTIVIRAL PROPHYLAXIS
     Dosage: 1.3 MG/KG / FOUR TIMES PER DAY / INTRAVENOUS
     Route: 042
  2. EPIVIR [Suspect]
     Indication: ANTIVIRAL PROPHYLAXIS
     Dosage: TRANSPLACENTARY
     Route: 064
  3. ZIDOVUDINE [Suspect]
     Indication: ANTIVIRAL PROPHYLAXIS
     Dosage: TRANSPLACENTARY
     Route: 064
  4. RETROVIR [Suspect]
     Indication: ANTIVIRAL PROPHYLAXIS
     Dosage: TRANSPLACENTARY
     Route: 064
  5. NEVIRAPINE (NEVIRAPINE) [Suspect]
     Indication: ANTIVIRAL PROPHYLAXIS
     Dosage: TRANSPLACENTARY
     Route: 064

REACTIONS (12)
  - APGAR SCORE LOW [None]
  - CAESAREAN SECTION [None]
  - DRUG EXPOSURE DURING PREGNANCY [None]
  - FLOPPY INFANT [None]
  - GRANULOCYTOPENIA [None]
  - HAEMATOCHEZIA [None]
  - INTERLEUKIN LEVEL INCREASED [None]
  - INTESTINAL PERFORATION [None]
  - NECROTISING ENTEROCOLITIS NEONATAL [None]
  - PALLOR [None]
  - PNEUMATOSIS INTESTINALIS [None]
  - SEPSIS NEONATAL [None]
